FAERS Safety Report 25489681 (Version 1)
Quarter: 2025Q2

REPORT INFORMATION
  Report Type: Spontaneous
  Country: ES (occurrence: ES)
  Receive Date: 20250627
  Receipt Date: 20250627
  Transmission Date: 20250716
  Serious: Yes (Hospitalization, Other)
  Sender: OTSUKA
  Company Number: ES-KERNPHARMA-202501729

PATIENT
  Age: 9 Year
  Sex: Female

DRUGS (24)
  1. ARIPIPRAZOLE [Interacting]
     Active Substance: ARIPIPRAZOLE
     Indication: Attention deficit hyperactivity disorder
     Dosage: 10 MG, QD
     Route: 065
  2. ARIPIPRAZOLE [Interacting]
     Active Substance: ARIPIPRAZOLE
     Indication: Self-destructive behaviour
  3. SERTRALINE [Suspect]
     Active Substance: SERTRALINE HYDROCHLORIDE
     Indication: Self-destructive behaviour
     Dosage: 150 MG, QD
     Route: 065
  4. SERTRALINE [Suspect]
     Active Substance: SERTRALINE HYDROCHLORIDE
     Indication: Attention deficit hyperactivity disorder
  5. FLUOXETINE [Suspect]
     Active Substance: FLUOXETINE HYDROCHLORIDE
     Indication: Attention deficit hyperactivity disorder
     Route: 065
  6. FLUOXETINE [Suspect]
     Active Substance: FLUOXETINE HYDROCHLORIDE
     Indication: Self-destructive behaviour
  7. TOPIRAMATE [Interacting]
     Active Substance: TOPIRAMATE
     Indication: Attention deficit hyperactivity disorder
     Dosage: 95 MG, QD
     Route: 065
  8. TOPIRAMATE [Interacting]
     Active Substance: TOPIRAMATE
     Indication: Self-destructive behaviour
  9. CHLORPROMAZINE [Suspect]
     Active Substance: CHLORPROMAZINE
     Indication: Attention deficit hyperactivity disorder
     Route: 065
  10. CHLORPROMAZINE [Suspect]
     Active Substance: CHLORPROMAZINE
     Indication: Self-destructive behaviour
  11. NALMEFENE [Suspect]
     Active Substance: NALMEFENE
     Indication: Attention deficit hyperactivity disorder
     Route: 065
  12. NALMEFENE [Suspect]
     Active Substance: NALMEFENE
     Indication: Self-destructive behaviour
  13. VALPROATE [Suspect]
     Active Substance: VALPROIC ACID
     Indication: Attention deficit hyperactivity disorder
     Route: 065
  14. VALPROATE [Suspect]
     Active Substance: VALPROIC ACID
     Indication: Self-destructive behaviour
  15. RISPERIDONE [Suspect]
     Active Substance: RISPERIDONE
     Indication: Attention deficit hyperactivity disorder
     Route: 065
  16. RISPERIDONE [Suspect]
     Active Substance: RISPERIDONE
     Indication: Self-destructive behaviour
  17. METHYLPHENIDATE [Suspect]
     Active Substance: METHYLPHENIDATE
     Indication: Attention deficit hyperactivity disorder
     Route: 065
  18. METHYLPHENIDATE [Suspect]
     Active Substance: METHYLPHENIDATE
     Indication: Self-destructive behaviour
  19. GUANFACINE [Suspect]
     Active Substance: GUANFACINE
     Indication: Attention deficit hyperactivity disorder
     Route: 065
  20. GUANFACINE [Suspect]
     Active Substance: GUANFACINE
     Indication: Self-destructive behaviour
  21. CLOMIPRAMINE [Suspect]
     Active Substance: CLOMIPRAMINE
     Indication: Attention deficit hyperactivity disorder
     Route: 065
  22. CLOMIPRAMINE [Suspect]
     Active Substance: CLOMIPRAMINE
     Indication: Self-destructive behaviour
  23. CLOZAPINE [Suspect]
     Active Substance: CLOZAPINE
     Indication: Attention deficit hyperactivity disorder
     Dosage: 150 MG, QD
     Route: 065
  24. CLOZAPINE [Suspect]
     Active Substance: CLOZAPINE
     Indication: Self-destructive behaviour

REACTIONS (6)
  - Self-destructive behaviour [Unknown]
  - Condition aggravated [Unknown]
  - Attention deficit hyperactivity disorder [Unknown]
  - Inhibitory drug interaction [Unknown]
  - Off label use [Unknown]
  - Drug ineffective [Unknown]
